FAERS Safety Report 8952498 (Version 1)
Quarter: 2012Q4

REPORT INFORMATION
  Report Type: 
  Country: EC (occurrence: EC)
  Receive Date: 20121205
  Receipt Date: 20121205
  Transmission Date: 20130627
  Serious: Yes (Other)
  Sender: FDA-Public Use
  Company Number: PHHY2012EC110108

PATIENT
  Sex: Female

DRUGS (3)
  1. EXFORGE [Suspect]
     Indication: HYPERTENSION
     Dosage: 1 DF QD (160 mg vals and 5 mg amlo)
     Route: 048
  2. GALVUS MET [Concomitant]
     Indication: TYPE 2 DIABETES MELLITUS
     Dosage: 50/500
     Route: 048
  3. NATRILIX [Concomitant]
     Dosage: UNK

REACTIONS (1)
  - Musculoskeletal pain [Not Recovered/Not Resolved]
